FAERS Safety Report 5455852-3 (Version None)
Quarter: 2007Q3

REPORT INFORMATION
  Report Type: 
  Country: None (occurrence: None)
  Receive Date: 20070918
  Receipt Date: 20070702
  Transmission Date: 20080115
  Serious: Yes (Other)
  Sender: FDA-Public Use
  Company Number: US-ASTRAZENECA-2006UW23774

PATIENT
  Age: 41 Year
  Sex: Female
  Weight: 61.4 kg

DRUGS (3)
  1. SEROQUEL [Suspect]
     Indication: SLEEP DISORDER
     Route: 048
     Dates: start: 19980101, end: 20070101
  2. ABILIFY [Concomitant]
  3. ZOLOFT [Concomitant]

REACTIONS (1)
  - PANCREATITIS [None]
